FAERS Safety Report 20031660 (Version 8)
Quarter: 2023Q1

REPORT INFORMATION
  Report Type: Report from Study
  Country: JP (occurrence: JP)
  Receive Date: 20211103
  Receipt Date: 20230321
  Transmission Date: 20230418
  Serious: Yes (Death, Hospitalization)
  Sender: FDA-Public Use
  Company Number: JP-ABBVIE-21K-087-4145024-00

PATIENT
  Age: 79 Year
  Sex: Male
  Weight: 57 kg

DRUGS (10)
  1. VENCLEXTA [Suspect]
     Active Substance: VENETOCLAX
     Indication: Acute myeloid leukaemia refractory
     Dosage: 50 MILLIGRAM
     Route: 048
     Dates: start: 20210625, end: 20210629
  2. VENCLEXTA [Suspect]
     Active Substance: VENETOCLAX
     Indication: Acute myeloid leukaemia refractory
     Dosage: 20 MILLIGRAM, STOP DATE-  MAY 2021
     Route: 048
     Dates: start: 20210512
  3. VENCLEXTA [Suspect]
     Active Substance: VENETOCLAX
     Indication: Acute myeloid leukaemia refractory
     Dosage: 200 MILLIGRAM, STOP DATE -  MAY 2021
     Route: 048
     Dates: start: 20210514
  4. VENCLEXTA [Suspect]
     Active Substance: VENETOCLAX
     Indication: Acute myeloid leukaemia refractory
     Dosage: 200 MILLIGRAM
     Route: 048
     Dates: start: 20210520, end: 20210607
  5. VENCLEXTA [Suspect]
     Active Substance: VENETOCLAX
     Indication: Acute myeloid leukaemia refractory
     Dosage: 400 MILLIGRAM, STOP DATE  - MAY 2021
     Route: 048
     Dates: start: 20210518
  6. VENCLEXTA [Suspect]
     Active Substance: VENETOCLAX
     Indication: Acute myeloid leukaemia refractory
     Dosage: 20 MILLIGRAM
     Route: 048
     Dates: start: 20210705, end: 20210718
  7. VENCLEXTA [Suspect]
     Active Substance: VENETOCLAX
     Indication: Acute myeloid leukaemia refractory
     Dosage: 100 MILLIGRAM, STOP DATE MAY 2021
     Route: 048
     Dates: start: 20210519
  8. CYTARABINE [Suspect]
     Active Substance: CYTARABINE
     Indication: Acute myeloid leukaemia
     Dosage: LOW DOSE
     Route: 042
     Dates: start: 20210512, end: 20210521
  9. FLUCONAZOLE [Concomitant]
     Active Substance: FLUCONAZOLE
     Indication: Infection prophylaxis
     Route: 048
     Dates: start: 20210521, end: 20210618
  10. FLUCONAZOLE [Concomitant]
     Active Substance: FLUCONAZOLE
     Indication: Infection prophylaxis
     Route: 048
     Dates: start: 20210521, end: 20210618

REACTIONS (5)
  - Acute myeloid leukaemia [Fatal]
  - Bronchopulmonary aspergillosis [Recovered/Resolved]
  - Febrile neutropenia [Recovered/Resolved]
  - Pseudomembranous colitis [Recovered/Resolved]
  - Diarrhoea [Recovered/Resolved]

NARRATIVE: CASE EVENT DATE: 20210514
